FAERS Safety Report 26032697 (Version 1)
Quarter: 2025Q4

REPORT INFORMATION
  Report Type: Spontaneous
  Country: US (occurrence: US)
  Receive Date: 20251112
  Receipt Date: 20251112
  Transmission Date: 20260117
  Serious: No
  Sender: AUROBINDO
  Company Number: ADE2025-1981

PATIENT
  Sex: Male

DRUGS (3)
  1. TESTOSTERONE CYPIONATE [Suspect]
     Active Substance: TESTOSTERONE CYPIONATE
     Indication: Blood testosterone decreased
     Dosage: 0.35 MILLIGRAM EVERY 3.5 DAYS, TWICE WEEKLY
     Route: 030
     Dates: start: 20230628
  2. TIZANIDINE HYDROCHLORIDE [Concomitant]
     Active Substance: TIZANIDINE HYDROCHLORIDE
     Indication: Hypotonia
     Dosage: UNK
     Route: 065
     Dates: start: 20240614
  3. BENICAR [Concomitant]
     Active Substance: OLMESARTAN MEDOXOMIL
     Indication: Blood pressure measurement
     Dosage: UNK, ONCE A DAY
     Route: 048
     Dates: start: 20240806

REACTIONS (2)
  - Product dose omission issue [Unknown]
  - Liquid product physical issue [Unknown]
